FAERS Safety Report 14358730 (Version 2)
Quarter: 2019Q4

REPORT INFORMATION
  Report Type: Report from Study
  Country: US (occurrence: US)
  Receive Date: 20180105
  Receipt Date: 20191002
  Transmission Date: 20200122
  Serious: No
  Sender: FDA-Public Use
  Company Number: US-SA-2017SA251179

PATIENT
  Age: 18 Year
  Sex: Male
  Weight: 72.5 kg

DRUGS (8)
  1. SOLODYN [Concomitant]
     Active Substance: MINOCYCLINE HYDROCHLORIDE
     Dosage: UNK UNK,UNK
  2. CALCIUM [Concomitant]
     Active Substance: CALCIUM
     Dosage: UNK UNK,UNK
  3. SALBUTAMOL [Concomitant]
     Active Substance: ALBUTEROL
     Dosage: UNK UNK,UNK
     Route: 065
  4. ZINC. [Concomitant]
     Active Substance: ZINC
     Dosage: UNK UNK,UNK
  5. DUPILUMAB [Suspect]
     Active Substance: DUPILUMAB
     Indication: DERMATITIS ATOPIC
     Dosage: UNK, 1X
     Route: 058
  6. EPINEPHRINE. [Concomitant]
     Active Substance: EPINEPHRINE
     Dosage: UNK UNK,UNK
  7. DUPILUMAB [Suspect]
     Active Substance: DUPILUMAB
     Dosage: 1 DF, QOW
     Route: 058
     Dates: start: 20170811
  8. PREDNISONE. [Concomitant]
     Active Substance: PREDNISONE
     Dosage: UNK UNK,UNK

REACTIONS (6)
  - Oropharyngeal pain [Unknown]
  - Rash [Unknown]
  - Nasopharyngitis [Unknown]
  - Unevaluable event [Unknown]
  - Tonsillar hypertrophy [Unknown]
  - Rash [Unknown]

NARRATIVE: CASE EVENT DATE: 2017
